FAERS Safety Report 15517557 (Version 1)
Quarter: 2018Q4

REPORT INFORMATION
  Report Type: Spontaneous
  Country: US (occurrence: US)
  Receive Date: 20181011
  Receipt Date: 20181011
  Transmission Date: 20190205
  Serious: No
  Sender: FDA-Public Use
  Company Number: None

PATIENT
  Sex: Male

DRUGS (1)
  1. MYCOPHENOLIC TAB DR [Suspect]
     Active Substance: MYCOPHENOLIC ACID
     Dates: start: 20171113

REACTIONS (2)
  - Treatment noncompliance [None]
  - Product dose omission [None]
